FAERS Safety Report 25688121 (Version 1)
Quarter: 2025Q3

REPORT INFORMATION
  Report Type: Report from Study
  Country: US (occurrence: US)
  Receive Date: 20250818
  Receipt Date: 20250818
  Transmission Date: 20251021
  Serious: Yes (Other)
  Sender: AMGEN
  Company Number: US-AMGEN-USASL2025159510

PATIENT
  Age: 51 Year
  Sex: Female

DRUGS (2)
  1. ENBREL [Suspect]
     Active Substance: ETANERCEPT
     Indication: Rheumatoid arthritis
     Route: 058
  2. ENBREL [Suspect]
     Active Substance: ETANERCEPT
     Dosage: 80 MILLIGRAM, QWK
     Route: 058
     Dates: start: 202505

REACTIONS (8)
  - Rheumatoid arthritis [Not Recovered/Not Resolved]
  - Heat oedema [Unknown]
  - Hypersensitivity [Unknown]
  - Off label use [Unknown]
  - Respiration abnormal [Recovering/Resolving]
  - Pituitary-dependent Cushing^s syndrome [Unknown]
  - Nausea [Unknown]
  - Asthenia [Unknown]

NARRATIVE: CASE EVENT DATE: 20250101
